FAERS Safety Report 5468290-4 (Version None)
Quarter: 2007Q3

REPORT INFORMATION
  Report Type: 
  Country: None (occurrence: None)
  Receive Date: 20070924
  Receipt Date: 20070911
  Transmission Date: 20080115
  Serious: Yes (Life-Threatening)
  Sender: FDA-Public Use
  Company Number: 2007330865

PATIENT
  Age: 67 Year
  Sex: Female

DRUGS (1)
  1. ROGAINE [Suspect]
     Indication: ALOPECIA
     Dosage: AS DIRECTED DAILY, TOPICAL
     Route: 061
     Dates: start: 20070902, end: 20070901

REACTIONS (1)
  - ARRHYTHMIA [None]
